FAERS Safety Report 16651078 (Version 2)
Quarter: 2019Q3

REPORT INFORMATION
  Report Type: Spontaneous
  Country: AU (occurrence: AU)
  Receive Date: 20190731
  Receipt Date: 20190819
  Transmission Date: 20191004
  Serious: Yes (Other)
  Sender: FDA-Public Use
  Company Number: AU-TOLMAR, INC.-2019AU007864

PATIENT

DRUGS (1)
  1. ELIGARD [Suspect]
     Active Substance: LEUPROLIDE ACETATE
     Indication: PRODUCT USED FOR UNKNOWN INDICATION
     Dosage: UNK
     Route: 065

REACTIONS (12)
  - Hot flush [Unknown]
  - Cerebrovascular accident [Unknown]
  - Sexual dysfunction [Unknown]
  - Affective disorder [Unknown]
  - Fracture [Unknown]
  - Neuropathy peripheral [Unknown]
  - Hepatic function abnormal [Unknown]
  - Fatigue [Unknown]
  - Muscular weakness [Unknown]
  - Osteonecrosis of jaw [Unknown]
  - Diabetes mellitus [Unknown]
  - Drug ineffective [Unknown]
